FAERS Safety Report 6347291-8 (Version None)
Quarter: 2009Q3

REPORT INFORMATION
  Report Type: 
  Country: None (occurrence: None)
  Receive Date: 20090908
  Receipt Date: 20090908
  Transmission Date: 20100115
  Serious: Yes (Disabling, Other)
  Sender: FDA-Public Use
  Company Number: None

PATIENT
  Sex: Female
  Weight: 57.6068 kg

DRUGS (1)
  1. NUVARING [Suspect]
     Indication: CONTRACEPTION
     Dosage: 1 RING MONTHLY -3 WEEKS- VAG
     Route: 067
     Dates: start: 20090906, end: 20090906

REACTIONS (10)
  - AMNESIA [None]
  - CONVULSION [None]
  - DIZZINESS [None]
  - LOSS OF CONSCIOUSNESS [None]
  - MOTOR DYSFUNCTION [None]
  - NAUSEA [None]
  - PARAESTHESIA [None]
  - RETCHING [None]
  - VISION BLURRED [None]
  - VOMITING [None]
